FAERS Safety Report 24789354 (Version 1)
Quarter: 2024Q4

REPORT INFORMATION
  Report Type: Spontaneous
  Country: US (occurrence: US)
  Receive Date: 20241230
  Receipt Date: 20241230
  Transmission Date: 20250114
  Serious: No
  Sender: ROCHE
  Company Number: US-ROCHE-10000162172

PATIENT
  Sex: Male

DRUGS (2)
  1. ATEZOLIZUMAB\HYALURONIDASE-TQJS [Suspect]
     Active Substance: ATEZOLIZUMAB\HYALURONIDASE-TQJS
     Indication: Small cell lung cancer extensive stage
     Dosage: 1875MG OF TECENTRIQ AND 30,000 UNITS OF HYALURONIDASE
     Route: 058
  2. TECENTRIQ [Suspect]
     Active Substance: ATEZOLIZUMAB
     Indication: Small cell lung cancer extensive stage
     Route: 042

REACTIONS (1)
  - Pain [Unknown]
